FAERS Safety Report 12917122 (Version 1)
Quarter: 2016Q4

REPORT INFORMATION
  Report Type: Spontaneous
  Country: CN (occurrence: CN)
  Receive Date: 20161107
  Receipt Date: 20161107
  Transmission Date: 20170207
  Serious: Yes (Death, Hospitalization, Other)
  Sender: FDA-Public Use
  Company Number: CN-BAYER-2016-208890

PATIENT
  Age: 35 Year
  Sex: Female

DRUGS (5)
  1. ETOPOSIDE. [Concomitant]
     Active Substance: ETOPOSIDE
     Dosage: UNK
  2. CYTARABINE. [Concomitant]
     Active Substance: CYTARABINE
     Dosage: UNK
  3. SORAFENIB (RAF KINASE INHIBITOR) [Suspect]
     Active Substance: SORAFENIB
     Indication: ACUTE MYELOID LEUKAEMIA
     Dosage: 400 MG, BID
     Route: 048
  4. SORAFENIB (RAF KINASE INHIBITOR) [Suspect]
     Active Substance: SORAFENIB
     Indication: FMS-LIKE TYROSINE KINASE 3 POSITIVE
  5. ACLARUBICIN [Concomitant]
     Active Substance: ACLARUBICIN
     Dosage: UNK

REACTIONS (5)
  - Acute myeloid leukaemia recurrent [Fatal]
  - Gastric haemorrhage [Recovered/Resolved]
  - Thyroiditis subacute [Recovered/Resolved]
  - Off label use [None]
  - Drug resistance [None]
